FAERS Safety Report 23045430 (Version 4)
Quarter: 2024Q1

REPORT INFORMATION
  Report Type: Spontaneous
  Country: US (occurrence: US)
  Receive Date: 20231009
  Receipt Date: 20240110
  Transmission Date: 20240410
  Serious: No
  Sender: FDA-Public Use
  Company Number: US-PFIZER INC-202300305046

PATIENT
  Age: 13 Year
  Sex: Female
  Weight: 43.54 kg

DRUGS (1)
  1. GENOTROPIN [Suspect]
     Active Substance: SOMATROPIN
     Indication: Growth hormone deficiency
     Dosage: 2.2 MG
     Dates: start: 202209

REACTIONS (2)
  - Drug dose omission by device [Unknown]
  - Device information output issue [Unknown]
